FAERS Safety Report 14007172 (Version 1)
Quarter: 2017Q3

REPORT INFORMATION
  Report Type: Spontaneous
  Country: US (occurrence: US)
  Receive Date: 20170924
  Receipt Date: 20170924
  Transmission Date: 20171128
  Serious: Yes (Death)
  Sender: FDA-Public Use
  Company Number: None

PATIENT
  Age: 9 Year
  Sex: Male

DRUGS (1)
  1. METHIMAZOLE. [Suspect]
     Active Substance: METHIMAZOLE
     Indication: BASEDOW^S DISEASE
     Route: 048

REACTIONS (18)
  - Headache [None]
  - Tonsillar hypertrophy [None]
  - Multiple organ dysfunction syndrome [None]
  - Oropharyngeal pain [None]
  - Rhinorrhoea [None]
  - Pneumonia [None]
  - Pyrexia [None]
  - Croup infectious [None]
  - Nasal congestion [None]
  - Lymphadenopathy [None]
  - Dyspnoea [None]
  - Agranulocytosis [None]
  - Heart rate increased [None]
  - Viral pharyngitis [None]
  - Respiratory distress [None]
  - Nasal turbinate hypertrophy [None]
  - Peritonsillar abscess [None]
  - Haemorrhage intracranial [None]

NARRATIVE: CASE EVENT DATE: 20150105
